FAERS Safety Report 8205067-0 (Version None)
Quarter: 2012Q1

REPORT INFORMATION
  Report Type: 
  Country: None (occurrence: None)
  Receive Date: 20120313
  Receipt Date: 20120228
  Transmission Date: 20120608
  Serious: Yes (Other)
  Sender: FDA-Public Use
  Company Number: US-ROCHE-1021558

PATIENT
  Sex: Female

DRUGS (6)
  1. HYDROMORPHONE HCL [Concomitant]
     Indication: PAIN
     Route: 048
     Dates: start: 20100929
  2. IBUPROFEN [Concomitant]
     Indication: PAIN
     Route: 048
  3. PRILOSEC OTC [Concomitant]
     Indication: GASTROOESOPHAGEAL REFLUX DISEASE
     Route: 048
     Dates: start: 20070706
  4. CAMPTOSAR [Concomitant]
  5. PAROXETINE HCL [Concomitant]
     Indication: DEPRESSION
     Route: 048
     Dates: start: 20090311
  6. HERCEPTIN [Suspect]
     Indication: BREAST CANCER METASTATIC
     Route: 042
     Dates: start: 20081119, end: 20111229

REACTIONS (5)
  - URTICARIA [None]
  - DRUG RESISTANCE [None]
  - BREAST CANCER [None]
  - PRURITUS [None]
  - UNEVALUABLE EVENT [None]
